FAERS Safety Report 15562665 (Version 1)
Quarter: 2018Q4

REPORT INFORMATION
  Report Type: Spontaneous
  Country: JP (occurrence: JP)
  Receive Date: 20181029
  Receipt Date: 20181029
  Transmission Date: 20190205
  Serious: Yes (Disabling)
  Sender: FDA-Public Use
  Company Number: JP-LPDUSPRD-20181993

PATIENT
  Age: 21 Year
  Sex: Female
  Weight: 47 kg

DRUGS (5)
  1. MARCAIN [Concomitant]
     Active Substance: BUPIVACAINE HYDROCHLORIDE
     Dosage: UNKNOWN
     Route: 051
     Dates: start: 20070125, end: 20070125
  2. MORPHINE HYDROCHLORIDE HYDRATE [Concomitant]
     Active Substance: MORPHINE HYDROCHLORIDE
     Dosage: UNKNOWN
     Route: 048
     Dates: start: 20070125, end: 20070125
  3. DORMICUM (NITRAZEPAM) [Concomitant]
     Active Substance: NITRAZEPAM
     Dosage: UNKNOWN
     Route: 051
     Dates: start: 20070125, end: 20070125
  4. RASENAZOLIN [Suspect]
     Active Substance: CEFAZOLIN SODIUM
     Dosage: 1 G, BID
     Route: 041
     Dates: start: 20070125, end: 20070127
  5. DROLEPTAN (DROPERIDOL-DSI) [Suspect]
     Active Substance: DROPERIDOL
     Dosage: 5 MG, QD
     Route: 042
     Dates: start: 20070125, end: 20070125

REACTIONS (2)
  - Anaphylactic shock [Recovered/Resolved with Sequelae]
  - Hypoxic-ischaemic encephalopathy [Recovered/Resolved with Sequelae]

NARRATIVE: CASE EVENT DATE: 20070125
